FAERS Safety Report 16238202 (Version 3)
Quarter: 2019Q2

REPORT INFORMATION
  Report Type: Spontaneous
  Country: US (occurrence: US)
  Receive Date: 20190425
  Receipt Date: 20190507
  Transmission Date: 20190711
  Serious: Yes (Other)
  Sender: FDA-Public Use
  Company Number: US-PFIZER INC-2019173063

PATIENT
  Age: 65 Year
  Sex: Female
  Weight: 69 kg

DRUGS (13)
  1. IRON [Concomitant]
     Active Substance: IRON
     Dosage: 159(45) MG, UNK
  2. VIT D [Concomitant]
     Active Substance: VITAMIN D NOS
     Dosage: 1000 IU, UNK
  3. MAGNESIUM [Concomitant]
     Active Substance: MAGNESIUM
     Dosage: 100 MG, UNK
  4. ESTRADIOL. [Concomitant]
     Active Substance: ESTRADIOL
     Dosage: UNK
  5. HYDROCORTISONE. [Concomitant]
     Active Substance: HYDROCORTISONE
     Dosage: UNK
  6. ALPRAZOLAM. [Concomitant]
     Active Substance: ALPRAZOLAM
     Dosage: UNK
  7. SYNTHROID [Concomitant]
     Active Substance: LEVOTHYROXINE SODIUM
     Dosage: 100 UG, UNK
  8. BIOTIN [Concomitant]
     Active Substance: BIOTIN
     Dosage: 10 MG, UNK
  9. MULTIVITAMIN [VITAMINS NOS] [Concomitant]
     Dosage: UNK
  10. SUMATRIPTAN SUCCINATE. [Concomitant]
     Active Substance: SUMATRIPTAN SUCCINATE
     Dosage: UNK
  11. ACTIVELLA [Concomitant]
     Active Substance: ESTRADIOL\NORETHINDRONE ACETATE
     Dosage: ESTRADIOL 0.5MG/ NORETHINDRONE ACETATE 0.1MG
  12. GENOTROPIN [Suspect]
     Active Substance: SOMATROPIN
     Indication: HYPOPITUITARISM
     Dosage: 0.3 MG, DAILY
     Route: 058
     Dates: start: 20190331
  13. DDAVP [Concomitant]
     Active Substance: DESMOPRESSIN ACETATE
     Dosage: 0.1 MG, UNK

REACTIONS (2)
  - Headache [Not Recovered/Not Resolved]
  - Ocular hypertension [Unknown]

NARRATIVE: CASE EVENT DATE: 201904
